FAERS Safety Report 4334578-3 (Version None)
Quarter: 2004Q2

REPORT INFORMATION
  Report Type: 
  Country: None (occurrence: None)
  Receive Date: 20040407
  Receipt Date: 20040329
  Transmission Date: 20050107
  Serious: Yes (Hospitalization)
  Sender: FDA-Public Use
  Company Number: GB-BRISTOL-MYERS SQUIBB COMPANY-12543872

PATIENT
  Age: 43 Year
  Sex: Male

DRUGS (5)
  1. CISPLATIN [Suspect]
     Indication: LUNG NEOPLASM MALIGNANT
     Route: 042
     Dates: start: 20040217, end: 20040217
  2. ETOPOSIDE [Suspect]
     Indication: LUNG NEOPLASM MALIGNANT
     Route: 042
     Dates: start: 20040217, end: 20040217
  3. CLARITHROMYCIN [Concomitant]
     Route: 048
     Dates: start: 20040226
  4. LANSOPRAZOLE [Concomitant]
     Route: 048
  5. DOMPERIDONE [Concomitant]
     Route: 048

REACTIONS (6)
  - CHILLS [None]
  - DYSPNOEA [None]
  - LOWER RESPIRATORY TRACT INFECTION [None]
  - NAUSEA [None]
  - NEUTROPENIA [None]
  - VOMITING [None]
